FAERS Safety Report 4415009-1 (Version None)
Quarter: 2004Q3

REPORT INFORMATION
  Report Type: 
  Country: None (occurrence: None)
  Receive Date: 20040804
  Receipt Date: 20040727
  Transmission Date: 20050211
  Serious: Yes (Hospitalization)
  Sender: FDA-Public Use
  Company Number: FR-ROCHE-375569

PATIENT
  Age: 77 Year
  Sex: Female

DRUGS (8)
  1. ROCEPHIN [Suspect]
     Indication: DRUG USE FOR UNKNOWN INDICATION
     Route: 042
     Dates: start: 20040430, end: 20040501
  2. SINTROM [Interacting]
     Indication: DRUG USE FOR UNKNOWN INDICATION
     Route: 048
     Dates: end: 20040502
  3. GENTAMYCIN SULFATE [Concomitant]
  4. DIFFU K [Concomitant]
  5. LASIX [Concomitant]
  6. CORDARONE [Concomitant]
  7. OXYGEN [Concomitant]
  8. ANTIVITAMIN K [Concomitant]

REACTIONS (8)
  - BLOOD BICARBONATE DECREASED [None]
  - DIVERTICULUM [None]
  - DRUG INTERACTION [None]
  - HAEMATURIA [None]
  - HYPONATRAEMIA [None]
  - OVERDOSE [None]
  - RENAL IMPAIRMENT [None]
  - RESPIRATORY DISORDER [None]
